FAERS Safety Report 14167237 (Version 1)
Quarter: 2017Q4

REPORT INFORMATION
  Report Type: Spontaneous
  Country: MA (occurrence: MA)
  Receive Date: 20171107
  Receipt Date: 20171107
  Transmission Date: 20180321
  Serious: Yes (Hospitalization)
  Sender: FDA-Public Use
  Company Number: MA-BAYER-2017-213398

PATIENT
  Age: 56 Year
  Sex: Male

DRUGS (4)
  1. ACETYLSALICYLIC ACID (} 100 MG) [Suspect]
     Active Substance: ASPIRIN
     Indication: THROMBOLYSIS
     Dosage: 300 MG, ONCE
  2. ENOXAPARIN [Interacting]
     Active Substance: ENOXAPARIN
     Indication: THROMBOLYSIS
     Dosage: UNK
  3. CLOPIDOGREL [Interacting]
     Active Substance: CLOPIDOGREL BISULFATE
     Indication: THROMBOLYSIS
     Dosage: 600 MG, ONCE
  4. TENECTEPLASE [Suspect]
     Active Substance: TENECTEPLASE
     Dosage: 40 MG, ONCE

REACTIONS (4)
  - Labelled drug-drug interaction medication error [None]
  - Drug administration error [None]
  - Haemorrhagic stroke [None]
  - Brain stem stroke [None]
